FAERS Safety Report 19200073 (Version 1)
Quarter: 2021Q2

REPORT INFORMATION
  Report Type: Spontaneous
  Country: US (occurrence: US)
  Receive Date: 20210430
  Receipt Date: 20210430
  Transmission Date: 20210717
  Serious: No
  Sender: FDA-Public Use
  Company Number: None

PATIENT
  Age: 41 Year
  Sex: Female
  Weight: 79.6 kg

DRUGS (6)
  1. MULTIVITAMIN GUMMY CHEW [Concomitant]
  2. AIMOVIG [Suspect]
     Active Substance: ERENUMAB-AOOE
     Indication: MIGRAINE
     Dosage: ?          OTHER FREQUENCY:EVERY 28 DAYS;?
     Route: 058
     Dates: start: 20201214, end: 20210430
  3. ACETAMINOPHEN 325 MG TABLETS [Concomitant]
  4. IBUPROFEN 200 MG TABLETS [Concomitant]
     Active Substance: IBUPROFEN
  5. CYANOCOBALAMIN 1000 MCG/ML INJECTION [Concomitant]
     Active Substance: CYANOCOBALAMIN
  6. RIZATRIPTAN 10 MG TABLET [Concomitant]
     Active Substance: RIZATRIPTAN

REACTIONS (2)
  - Alopecia [None]
  - Trichorrhexis [None]

NARRATIVE: CASE EVENT DATE: 20210430
